FAERS Safety Report 8109024-4 (Version None)
Quarter: 2012Q1

REPORT INFORMATION
  Report Type: 
  Country: None (occurrence: None)
  Receive Date: 20120202
  Receipt Date: 20120109
  Transmission Date: 20120608
  Serious: No
  Sender: FDA-Public Use
  Company Number: US-AMGEN-USASP2011067600

PATIENT
  Age: 38 Year
  Sex: Female
  Weight: 53.515 kg

DRUGS (1)
  1. ENBREL [Suspect]
     Indication: ANKYLOSING SPONDYLITIS
     Dosage: 50 MG, QWK
     Route: 058
     Dates: start: 20111206

REACTIONS (11)
  - INJECTION SITE PRURITUS [None]
  - NAUSEA [None]
  - DECREASED APPETITE [None]
  - INJECTION SITE EXTRAVASATION [None]
  - INJECTION SITE SWELLING [None]
  - INFLUENZA [None]
  - EXPOSURE VIA DIRECT CONTACT [None]
  - VOMITING [None]
  - DIARRHOEA [None]
  - RASH PRURITIC [None]
  - INJECTION SITE ERYTHEMA [None]
